FAERS Safety Report 16828171 (Version 1)
Quarter: 2019Q3

REPORT INFORMATION
  Report Type: Spontaneous
  Country: CO (occurrence: CO)
  Receive Date: 20190919
  Receipt Date: 20190919
  Transmission Date: 20191005
  Serious: Yes (Life-Threatening, Disabling, Other)
  Sender: FDA-Public Use
  Company Number: CO-FRESENIUS KABI-FK201910257

PATIENT
  Age: 69 Year
  Sex: Male

DRUGS (1)
  1. HEPARIN (MANUFACTURER UNKNOWN) [Suspect]
     Active Substance: HEPARIN SODIUM
     Indication: ANTICOAGULANT THERAPY
     Dosage: UNKNOWN
     Route: 042

REACTIONS (7)
  - Haemorrhage intracranial [Recovered/Resolved with Sequelae]
  - Intracranial haematoma [Recovered/Resolved with Sequelae]
  - Myelopathy [Recovered/Resolved with Sequelae]
  - Hypertensive emergency [Unknown]
  - Brain stem ischaemia [Recovered/Resolved with Sequelae]
  - Spinal cord infarction [Recovered/Resolved with Sequelae]
  - Treatment failure [Recovered/Resolved with Sequelae]
